FAERS Safety Report 11923381 (Version 3)
Quarter: 2016Q2

REPORT INFORMATION
  Report Type: Spontaneous
  Country: JP (occurrence: JP)
  Receive Date: 20160118
  Receipt Date: 20160408
  Transmission Date: 20160815
  Serious: Yes (Death, Other)
  Sender: FDA-Public Use
  Company Number: JP-009507513-0907USA04902

PATIENT
  Age: 47 Year
  Sex: Male

DRUGS (2)
  1. AMPHOTERICIN B. [Suspect]
     Active Substance: AMPHOTERICIN B
     Indication: LYMPHOMA
     Dosage: DAILY DOSAGE UNKNOWN
     Route: 065
  2. TIENAM FOR INTRAVENOUS DRIP INFUSION [Suspect]
     Active Substance: CILASTATIN SODIUM\IMIPENEM
     Indication: LYMPHOMA
     Dosage: DAILY DOSE UNKNOWN
     Route: 051

REACTIONS (2)
  - Stevens-Johnson syndrome [Fatal]
  - Respiratory failure [Fatal]
